FAERS Safety Report 15717763 (Version 1)
Quarter: 2018Q4

REPORT INFORMATION
  Report Type: Spontaneous
  Country: US (occurrence: US)
  Receive Date: 20181129
  Receipt Date: 20181129
  Transmission Date: 20190205
  Serious: Yes (Hospitalization)
  Sender: FDA-Public Use
  Company Number: None

PATIENT
  Age: 80 Year
  Sex: Male
  Weight: 119.29 kg

DRUGS (2)
  1. GLIPIZIDE. [Suspect]
     Active Substance: GLIPIZIDE
     Indication: DIABETES MELLITUS
     Route: 048
  2. CARVEDILOL. [Suspect]
     Active Substance: CARVEDILOL
     Indication: CORONARY ARTERY DISEASE
     Dosage: ?          OTHER DOSE:3.125MG;?
     Route: 048
     Dates: start: 20091228, end: 20180624

REACTIONS (4)
  - Hypoglycaemia [None]
  - Dysarthria [None]
  - Bradycardia [None]
  - Facial paralysis [None]

NARRATIVE: CASE EVENT DATE: 20180624
